FAERS Safety Report 5391615-5 (Version None)
Quarter: 2007Q3

REPORT INFORMATION
  Report Type: 
  Country: None (occurrence: None)
  Receive Date: 20070719
  Receipt Date: 20070709
  Transmission Date: 20080115
  Serious: Yes (Other)
  Sender: FDA-Public Use
  Company Number: GBWYE992910JUL07

PATIENT
  Sex: Male

DRUGS (5)
  1. VENLAFAXIINE HCL [Suspect]
     Indication: DEPRESSION
     Dosage: 75 MG DAILY
     Dates: start: 20000101
  2. VENLAFAXIINE HCL [Interacting]
     Dosage: 225 MG DAILY
  3. VENLAFAXIINE HCL [Interacting]
     Dosage: 150MG DAILY
  4. DULOXETINE [Interacting]
     Dosage: 60MG DAILY
  5. CARBAMAZEPINE [Interacting]
     Indication: AGGRESSION
     Dosage: BETWEEN 400MG TO 600MG DAILY

REACTIONS (4)
  - DRUG INEFFECTIVE [None]
  - DRUG INTERACTION [None]
  - HOMICIDAL IDEATION [None]
  - HOMICIDE [None]
